FAERS Safety Report 17598050 (Version 1)
Quarter: 2020Q1

REPORT INFORMATION
  Report Type: Spontaneous
  Country: US (occurrence: US)
  Receive Date: 20200330
  Receipt Date: 20200330
  Transmission Date: 20200409
  Serious: No
  Sender: FDA-Public Use
  Company Number: US-PFIZER INC-2020130295

PATIENT
  Age: 73 Year
  Sex: Male
  Weight: 97.52 kg

DRUGS (1)
  1. CHANTIX [Suspect]
     Active Substance: VARENICLINE TARTRATE
     Indication: EX-TOBACCO USER
     Dosage: UNK

REACTIONS (2)
  - Chronic obstructive pulmonary disease [Unknown]
  - Wrong strength [Unknown]
